FAERS Safety Report 23933431 (Version 1)
Quarter: 2024Q2

REPORT INFORMATION
  Report Type: Spontaneous
  Country: CN (occurrence: CN)
  Receive Date: 20240603
  Receipt Date: 20240603
  Transmission Date: 20240716
  Serious: Yes (Hospitalization)
  Sender: FDA-Public Use
  Company Number: CN-002147023-NVSC2024CN116097

PATIENT
  Sex: Male

DRUGS (1)
  1. CARBAMAZEPINE [Suspect]
     Active Substance: CARBAMAZEPINE
     Indication: Trigeminal neuralgia
     Dosage: UNK
     Route: 048

REACTIONS (4)
  - Blood prolactin increased [Recovered/Resolved]
  - Pituitary tumour benign [Recovered/Resolved]
  - Toothache [Recovered/Resolved]
  - Drug ineffective [Unknown]
